FAERS Safety Report 14137492 (Version 2)
Quarter: 2018Q1

REPORT INFORMATION
  Report Type: Spontaneous
  Country: IT (occurrence: IT)
  Receive Date: 20171027
  Receipt Date: 20180314
  Transmission Date: 20180508
  Serious: Yes (Hospitalization, Other)
  Sender: FDA-Public Use
  Company Number: IT-PFIZER INC-2017462129

PATIENT
  Age: 87 Year
  Sex: Female

DRUGS (5)
  1. PANTORC [Concomitant]
     Active Substance: PANTOPRAZOLE SODIUM
     Dosage: UNK
     Route: 048
     Dates: start: 20170510
  2. CONTROL /00033401/ [Concomitant]
     Active Substance: LIDOCAINE
     Dosage: UNK
  3. CEFTRIAXONE SODIUM. [Suspect]
     Active Substance: CEFTRIAXONE SODIUM
     Dosage: 2 G, DAILY
     Dates: start: 20170511
  4. PLASIL /00041901/ [Concomitant]
     Active Substance: METOCLOPRAMIDE
     Dosage: 1 DF, UNK
     Route: 042
     Dates: start: 20170510
  5. AMIODARONE [Concomitant]
     Active Substance: AMIODARONE
     Dosage: UNK

REACTIONS (5)
  - Cholestasis [Recovering/Resolving]
  - Fall [Recovering/Resolving]
  - Pancreatitis acute [Recovering/Resolving]
  - Illusion [Recovering/Resolving]
  - Craniocerebral injury [Recovering/Resolving]

NARRATIVE: CASE EVENT DATE: 20170511
